FAERS Safety Report 11894422 (Version 1)
Quarter: 2016Q1

REPORT INFORMATION
  Report Type: Spontaneous
  Country: IT (occurrence: IT)
  Receive Date: 20160107
  Receipt Date: 20160107
  Transmission Date: 20160526
  Serious: Yes (Other)
  Sender: FDA-Public Use
  Company Number: IT-TEVA-623235ACC

PATIENT
  Age: 60 Year
  Sex: Male
  Weight: 54 kg

DRUGS (4)
  1. FLUOROURACIL. [Suspect]
     Active Substance: FLUOROURACIL
     Dosage: 3888 MG CYCLICAL
     Route: 041
     Dates: start: 20150910, end: 20151202
  2. FLUOROURACIL. [Suspect]
     Active Substance: FLUOROURACIL
     Indication: GASTRIC CANCER
     Dosage: 648 MG CYCLICAL
     Route: 042
     Dates: start: 20150910, end: 20151202
  3. OXALIPLATINO SUN - 5MG/ML CONCENTRATO PER SOLUZIONE PER INFUSIONE [Suspect]
     Active Substance: OXALIPLATIN
     Indication: GASTRIC CANCER
     Dosage: 110 MG CYCLICAL
     Route: 042
     Dates: start: 20150910, end: 20151202
  4. CALCIUM LEVOFOLINATE [Concomitant]
     Active Substance: LEVOLEUCOVORIN CALCIUM
     Indication: GASTRIC CANCER
     Dosage: 324 MG
     Route: 042
     Dates: start: 20150910, end: 20151222

REACTIONS (1)
  - Hyperbilirubinaemia [Recovering/Resolving]

NARRATIVE: CASE EVENT DATE: 20151202
